FAERS Safety Report 8616032-3 (Version None)
Quarter: 2012Q3

REPORT INFORMATION
  Report Type: 
  Country: None (occurrence: None)
  Receive Date: 20120823
  Receipt Date: 20120816
  Transmission Date: 20120928
  Serious: No
  Sender: FDA-Public Use
  Company Number: US-PFIZER INC-2012202152

PATIENT
  Age: 85 Year
  Sex: Female
  Weight: 79.819 kg

DRUGS (10)
  1. ASPIRIN [Suspect]
     Dosage: 81 MG, UNK
  2. DETROL LA [Suspect]
     Indication: URINARY INCONTINENCE
     Dosage: 4 MG, DAILY AT NIGHT
  3. METOPROLOL TARTRATE [Suspect]
     Indication: HYPERTENSION
     Dosage: 100 MG, DAILY
  4. CALCIUM CARBONATE [Suspect]
     Dosage: UNK
  5. LOVASTATIN [Suspect]
     Indication: BLOOD CHOLESTEROL INCREASED
     Dosage: 40 MG, DAILY
  6. CENTRUM [Suspect]
     Dosage: UNK
  7. DILTIAZEM HCL [Suspect]
     Indication: DRUG THERAPY
     Dosage: 240 MG, DAILY
  8. VITAMIN B-12 [Suspect]
     Dosage: UNK
  9. ISOSORBIDE MONONITRATE [Suspect]
     Indication: ANGINA PECTORIS
     Dosage: 50 MG, DAILY
  10. METHIMAZOLE [Suspect]
     Indication: THYROID DISORDER
     Dosage: 05 MG, DAILY

REACTIONS (2)
  - DRY MOUTH [None]
  - INCORRECT DOSE ADMINISTERED [None]
